FAERS Safety Report 6683357-0 (Version None)
Quarter: 2010Q2

REPORT INFORMATION
  Report Type: 
  Country: None (occurrence: None)
  Receive Date: 20100415
  Receipt Date: 20100408
  Transmission Date: 20101027
  Serious: Yes (Other)
  Sender: FDA-Public Use
  Company Number: US-ABBOTT-10P-163-0637436-00

PATIENT
  Sex: Female

DRUGS (2)
  1. HUMIRA [Suspect]
     Indication: PSORIATIC ARTHROPATHY
     Route: 058
     Dates: start: 20060201, end: 20090630
  2. HUMIRA [Suspect]
     Indication: DRUG USE FOR UNKNOWN INDICATION
     Route: 058
     Dates: start: 20100301

REACTIONS (6)
  - ARTHRALGIA [None]
  - CHRONIC SINUSITIS [None]
  - IMPAIRED HEALING [None]
  - MOBILITY DECREASED [None]
  - NASAL SEPTUM DEVIATION [None]
  - PNEUMONIA [None]
